FAERS Safety Report 25671454 (Version 1)
Quarter: 2025Q3

REPORT INFORMATION
  Report Type: Spontaneous
  Country: MY (occurrence: MY)
  Receive Date: 20250812
  Receipt Date: 20250812
  Transmission Date: 20251021
  Serious: Yes (Other)
  Sender: ORGANON
  Company Number: MY-ORGANON-O2508MYS000677

PATIENT
  Age: 84 Year
  Sex: Male

DRUGS (7)
  1. LOSARTAN POTASSIUM [Suspect]
     Active Substance: LOSARTAN POTASSIUM
  2. ARCOXIA [Suspect]
     Active Substance: ETORICOXIB
     Indication: Gout
  3. FELODIPINE [Concomitant]
     Active Substance: FELODIPINE
  4. ALLOPURINOL [Concomitant]
     Active Substance: ALLOPURINOL
     Indication: Blood uric acid
  5. IBERET F [Concomitant]
  6. NEUROBION [CYANOCOBALAMIN;PYRIDOXINE HYDROCHLORIDE;THIAMINE HYDROCHLOR [Concomitant]
  7. SERETIDE [Concomitant]
     Active Substance: FLUTICASONE PROPIONATE\SALMETEROL XINAFOATE

REACTIONS (3)
  - Ejection fraction decreased [Unknown]
  - Dyspnoea [Unknown]
  - Peripheral swelling [Unknown]
